FAERS Safety Report 4570046-1 (Version None)
Quarter: 2005Q1

REPORT INFORMATION
  Report Type: 
  Country: None (occurrence: None)
  Receive Date: 20050131
  Receipt Date: 20040513
  Transmission Date: 20050727
  Serious: Yes (Other)
  Sender: FDA-Public Use
  Company Number: 7974

PATIENT
  Age: 29 Year
  Sex: Female

DRUGS (5)
  1. CYTARABINE [Suspect]
     Indication: ACUTE MYELOID LEUKAEMIA
  2. VINCRISTINE [Suspect]
     Indication: ACUTE MYELOID LEUKAEMIA
  3. ADRIAMYCIN PFS [Suspect]
     Indication: ACUTE MYELOID LEUKAEMIA
  4. THIOGUANINE [Suspect]
     Indication: ACUTE MYELOID LEUKAEMIA
  5. PREDNISONE [Suspect]
     Indication: ACUTE MYELOID LEUKAEMIA

REACTIONS (2)
  - DRUG EXPOSURE DURING PREGNANCY [None]
  - PREMATURE LABOUR [None]
